FAERS Safety Report 23127163 (Version 1)
Quarter: 2023Q4

REPORT INFORMATION
  Report Type: Report from Study
  Country: JP (occurrence: JP)
  Receive Date: 20231030
  Receipt Date: 20231030
  Transmission Date: 20240110
  Serious: Yes (Other)
  Sender: FDA-Public Use
  Company Number: JP-TAKEDA-2023TJP013702

PATIENT
  Age: 68 Year
  Sex: Male
  Weight: 77 kg

DRUGS (8)
  1. PANITUMUMAB [Suspect]
     Active Substance: PANITUMUMAB
     Indication: Adenocarcinoma of colon
     Dosage: 460 MILLIGRAM, Q2WK
     Route: 065
     Dates: start: 20210219, end: 20210401
  2. PANITUMUMAB [Suspect]
     Active Substance: PANITUMUMAB
     Dosage: 360 MILLIGRAM, Q2WK
     Route: 065
     Dates: start: 20210506, end: 20210506
  3. IRINOTECAN [Suspect]
     Active Substance: IRINOTECAN
     Indication: Adenocarcinoma of colon
     Dosage: 180 MILLIGRAM, Q2WEEKS
     Route: 065
     Dates: start: 20210219, end: 20210219
  4. IRINOTECAN [Suspect]
     Active Substance: IRINOTECAN
     Dosage: 140 MILLIGRAM, Q2WEEKS
     Route: 065
     Dates: start: 20210311, end: 20210401
  5. IRINOTECAN [Suspect]
     Active Substance: IRINOTECAN
     Dosage: 60 MILLIGRAM, Q2WEEKS
     Route: 065
     Dates: start: 20210422, end: 20210422
  6. FILGRASTIM [Concomitant]
     Active Substance: FILGRASTIM
     Indication: Product used for unknown indication
     Dosage: UNK
     Route: 065
     Dates: start: 20210304, end: 20210304
  7. FILGRASTIM [Concomitant]
     Active Substance: FILGRASTIM
     Dosage: UNK
     Route: 065
     Dates: start: 20210415, end: 20210415
  8. FILGRASTIM [Concomitant]
     Active Substance: FILGRASTIM
     Dosage: UNK
     Route: 065
     Dates: start: 20210506, end: 20210506

REACTIONS (12)
  - Neutrophil count decreased [Unknown]
  - Platelet count decreased [Unknown]
  - Gamma-glutamyltransferase increased [Unknown]
  - Haemoglobin decreased [Unknown]
  - White blood cell count decreased [Unknown]
  - Blood magnesium decreased [Unknown]
  - Pyrexia [Unknown]
  - Alopecia [Unknown]
  - Dry skin [Unknown]
  - Fatigue [Unknown]
  - Decreased appetite [Unknown]
  - Blood bilirubin increased [Unknown]
